FAERS Safety Report 10017573 (Version 1)
Quarter: 2014Q1

REPORT INFORMATION
  Report Type: Spontaneous
  Country: US (occurrence: None)
  Receive Date: 20140313
  Receipt Date: 20140313
  Transmission Date: 20141002
  Serious: Yes (Disabling)
  Sender: FDA-Public Use
  Company Number: None

PATIENT
  Age: 53 Year
  Sex: Female
  Weight: 81.65 kg

DRUGS (6)
  1. PROLIA [Suspect]
     Indication: OSTEOPOROSIS
     Dosage: EVERY 6 MONTHS
     Dates: start: 201101, end: 201307
  2. TRAMADOL HCL [Concomitant]
  3. HYDROCODONE/ACETAMINOPHEN [Concomitant]
  4. CARISOPRODOL [Concomitant]
  5. CENTRUM SILVER WOMENS MULTIVITAMIN [Concomitant]
  6. CALTRATE CALCIUM/D3 [Concomitant]

REACTIONS (9)
  - Pain in extremity [None]
  - Spinal fracture [None]
  - Arthralgia [None]
  - Arthralgia [None]
  - Back pain [None]
  - Bone density decreased [None]
  - Condition aggravated [None]
  - Musculoskeletal pain [None]
  - Pain in extremity [None]
